FAERS Safety Report 20039063 (Version 1)
Quarter: 2021Q4

REPORT INFORMATION
  Report Type: Spontaneous
  Country: CN (occurrence: CN)
  Receive Date: 20211105
  Receipt Date: 20211105
  Transmission Date: 20220304
  Serious: Yes (Hospitalization, Other)
  Sender: FDA-Public Use
  Company Number: CN-PFIZER INC-202101472052

PATIENT
  Age: 7 Year
  Sex: Male
  Weight: 19.5 kg

DRUGS (6)
  1. CYTARABINE [Suspect]
     Active Substance: CYTARABINE
     Indication: Burkitt^s lymphoma
     Dosage: 0.030 G, 1X/DAY
     Route: 037
     Dates: start: 20210809, end: 20210809
  2. METHOTREXATE [Suspect]
     Active Substance: METHOTREXATE
     Indication: Burkitt^s lymphoma
     Dosage: 15.000 MG, 1X/DAY
     Route: 037
     Dates: start: 20210805, end: 20210805
  3. METHOTREXATE [Suspect]
     Active Substance: METHOTREXATE
     Indication: Burkitt^s lymphoma
     Dosage: 4.200 G, 1X/DAY
     Route: 041
     Dates: start: 20210813, end: 20210813
  4. CYCLOPHOSPHAMIDE [Suspect]
     Active Substance: CYCLOPHOSPHAMIDE
     Indication: Burkitt^s lymphoma
     Dosage: 0.252 G, 1X/DAY
     Route: 042
     Dates: start: 20210805, end: 20210805
  5. DAUNORUBICIN HYDROCHLORIDE [Suspect]
     Active Substance: DAUNORUBICIN HYDROCHLORIDE
     Indication: Burkitt^s lymphoma
     Dosage: 25.200 MG, 1X/DAY
     Route: 041
     Dates: start: 20210814, end: 20210815
  6. VINCRISTINE SULFATE [Suspect]
     Active Substance: VINCRISTINE SULFATE
     Indication: Burkitt^s lymphoma
     Dosage: 0.840 MG, 1X/DAY
     Route: 042
     Dates: start: 20210805, end: 20210805

REACTIONS (6)
  - Myelosuppression [Recovering/Resolving]
  - Infection [Recovering/Resolving]
  - Pyrexia [Recovering/Resolving]
  - Inflammation [Recovering/Resolving]
  - Granulocyte count decreased [Recovering/Resolving]
  - Haemoglobin decreased [Recovering/Resolving]

NARRATIVE: CASE EVENT DATE: 20210822
